FAERS Safety Report 8387425 (Version 2)
Quarter: 2012Q4

REPORT INFORMATION
  Report Type: 
  Country: DE (occurrence: DE)
  Receive Date: 20120202
  Receipt Date: 20120928
  Transmission Date: 20130627
  Serious: Yes (Other)
  Sender: FDA-Public Use
  Company Number: DE-NOVOPROD-343717

PATIENT
  Age: 19 Year
  Sex: Male
  Weight: 101 kg

DRUGS (2)
  1. NORDITROPIN NORDIFLEX [Suspect]
     Indication: BLOOD GROWTH HORMONE ABNORMAL
     Dosage: UNK
     Route: 058
     Dates: start: 200511, end: 201002
  2. L-THYROXIN [Concomitant]
     Dosage: 125 mcg, qd
     Route: 048
     Dates: start: 20110321, end: 20110615

REACTIONS (1)
  - Hypothyroidism [Recovered/Resolved]
